FAERS Safety Report 7487018-X (Version None)
Quarter: 2011Q2

REPORT INFORMATION
  Report Type: 
  Country: None (occurrence: None)
  Receive Date: 20110518
  Receipt Date: 20110511
  Transmission Date: 20111010
  Serious: Yes (Other)
  Sender: FDA-Public Use
  Company Number: IL-AMGEN-ISRSP2011008059

PATIENT
  Age: 54 Year
  Sex: Female

DRUGS (2)
  1. ENBREL [Suspect]
     Indication: PSORIATIC ARTHROPATHY
     Dosage: LYOPHILIZED POWDER
     Dates: start: 20100701
  2. ENBREL [Suspect]
     Dosage: PREFILLED SYRINGE

REACTIONS (1)
  - BREAST MASS [None]
